FAERS Safety Report 12788126 (Version 1)
Quarter: 2016Q3

REPORT INFORMATION
  Report Type: Not Available
  Country: None (occurrence: US)
  Receive Date: 20160928
  Receipt Date: 20160928
  Transmission Date: 20161109
  Serious: Yes (Death, Other)
  Sender: FDA-Public Use
  Company Number: US-AKORN-40088

PATIENT
  Age: 19 Year
  Sex: Male

DRUGS (1)
  1. LOPERAMIDE HYDROCHLORIDE ORAL SOLUTION [Suspect]
     Active Substance: LOPERAMIDE

REACTIONS (3)
  - Bladder dilatation [None]
  - Overdose [None]
  - Haematemesis [None]
